FAERS Safety Report 9513279 (Version 2)
Quarter: 2013Q3

REPORT INFORMATION
  Report Type: Spontaneous
  Country: US (occurrence: US)
  Receive Date: 20130910
  Receipt Date: 20130927
  Transmission Date: 20140515
  Serious: No
  Sender: FDA-Public Use
  Company Number: US-009507513-1309USA003678

PATIENT
  Sex: Male

DRUGS (3)
  1. AFRIN SPRAY [Suspect]
     Indication: PRODUCT USED FOR UNKNOWN INDICATION
     Dosage: UNK, UNKNOWN
     Route: 045
  2. AFRIN SPRAY [Suspect]
     Dosage: UNK, UNKNOWN
     Route: 045
  3. AFRIN SPRAY [Suspect]
     Dosage: UNK, UNKNOWN
     Route: 045

REACTIONS (2)
  - Drug ineffective [Unknown]
  - Product container issue [Unknown]
